FAERS Safety Report 6780246-8 (Version None)
Quarter: 2010Q2

REPORT INFORMATION
  Report Type: 
  Country: None (occurrence: None)
  Receive Date: 20100618
  Receipt Date: 20100607
  Transmission Date: 20101027
  Serious: Yes (Other)
  Sender: FDA-Public Use
  Company Number: DE-ROCHE-709173

PATIENT
  Age: 47 Year
  Sex: Male

DRUGS (1)
  1. ROFERON-A [Suspect]
     Dosage: INJECTIONS
     Route: 065
     Dates: start: 20020701, end: 20100201

REACTIONS (4)
  - BLOOD TEST ABNORMAL [None]
  - ERECTILE DYSFUNCTION [None]
  - HYPOAESTHESIA [None]
  - LIVER FUNCTION TEST ABNORMAL [None]
